FAERS Safety Report 21752277 (Version 1)
Quarter: 2022Q4

REPORT INFORMATION
  Report Type: Spontaneous
  Country: US (occurrence: US)
  Receive Date: 20221220
  Receipt Date: 20221220
  Transmission Date: 20230112
  Serious: Yes (Other)
  Sender: FDA-Public Use
  Company Number: US-PADAGIS-2022PAD01186

PATIENT

DRUGS (7)
  1. CYCLOSPORINE [Suspect]
     Active Substance: CYCLOSPORINE
     Indication: Pyoderma gangrenosum
     Dosage: UNK
     Route: 065
  2. METHOTREXATE [Concomitant]
     Active Substance: METHOTREXATE
     Indication: Pyoderma gangrenosum
     Dosage: UNK
     Route: 065
  3. APREMILAST [Concomitant]
     Active Substance: APREMILAST
     Indication: Pyoderma gangrenosum
     Dosage: UNK
     Route: 065
  4. RITUXIMAB [Concomitant]
     Active Substance: RITUXIMAB
     Indication: Pyoderma gangrenosum
     Dosage: UNK
     Route: 065
  5. IMMUNE GLOBULIN NOS [Concomitant]
     Active Substance: IMMUNE GLOBULIN NOS
     Indication: Pyoderma gangrenosum
     Dosage: UNK
     Route: 042
  6. INFLIXIMAB [Concomitant]
     Active Substance: INFLIXIMAB
     Indication: Pyoderma gangrenosum
     Dosage: UNK
     Route: 065
  7. TACROLIMUS [Concomitant]
     Active Substance: TACROLIMUS
     Indication: Pyoderma gangrenosum
     Dosage: UNK
     Route: 065

REACTIONS (3)
  - Disease recurrence [None]
  - Staphylococcal infection [Unknown]
  - Product use in unapproved indication [Unknown]
